FAERS Safety Report 6703405-9 (Version None)
Quarter: 2010Q2

REPORT INFORMATION
  Report Type: 
  Country: None (occurrence: None)
  Receive Date: 20100430
  Receipt Date: 20100422
  Transmission Date: 20101027
  Serious: Yes (Life-Threatening, Hospitalization)
  Sender: FDA-Public Use
  Company Number: US-NOVOPROD-301048

PATIENT
  Sex: Male
  Weight: 120.6 kg

DRUGS (18)
  1. SIBA FLEXPEN [Suspect]
     Indication: TYPE 2 DIABETES MELLITUS
     Dosage: 148 IU, QD
     Route: 058
     Dates: start: 20090924
  2. NOVORAPID FLEXPEN [Suspect]
     Indication: TYPE 2 DIABETES MELLITUS
     Dosage: 148 IU, QD
     Route: 058
     Dates: start: 20090924
  3. POTASSIUM [Concomitant]
     Indication: SWELLING FACE
     Dosage: 20 MG, QD
     Dates: start: 20080801
  4. CITALOPRAM [Concomitant]
     Dosage: 20 MG, QD
     Dates: start: 20080801, end: 20091117
  5. PANTOPRAZOLE [Concomitant]
     Dosage: 40 MG, QD
     Dates: start: 20080801
  6. METOPROLOL TARTRATE [Concomitant]
     Dosage: 50 MG, BID
     Dates: start: 20080801
  7. TORSEMIDE [Concomitant]
     Dosage: 20 MG, BID
     Dates: start: 20080801, end: 20081117
  8. ASPIRIN [Concomitant]
     Indication: SWELLING FACE
     Dosage: 325 MG, QD
     Dates: start: 20080801
  9. PRIMIDONE [Concomitant]
     Dosage: 50 MG, BID
     Dates: start: 20081001
  10. METFORMIN [Concomitant]
     Dosage: 1000 MG, BID
     Dates: start: 20080901
  11. SIMVASTATIN [Concomitant]
     Dosage: 40 MG, QD
     Dates: start: 20090101
  12. TESTIM [Concomitant]
     Dosage: 50 MG, PRN
     Dates: start: 19900101
  13. OXYCODONE AND ACETAMINOPHEN [Concomitant]
     Dosage: 5/325MG, PRN
     Dates: start: 19900101
  14. INFLUENZA VACCINE [Concomitant]
     Dosage: 1 UNK, SINGLE
     Dates: start: 20091120, end: 20091120
  15. MAGNESIUM OXIDE [Concomitant]
     Indication: CARDIAC FAILURE
     Dosage: 400 MG, BID
     Dates: start: 20080801
  16. AMOXICILLIN [Concomitant]
     Indication: DRUG HYPERSENSITIVITY
     Dosage: 2000 MG, QD
     Dates: start: 20091109, end: 20091109
  17. EXCEDRIN                           /00110301/ [Concomitant]
     Indication: DRUG HYPERSENSITIVITY
     Dosage: 800 MG, QD
     Dates: start: 20091110, end: 20091110
  18. COZAAR [Concomitant]
     Dosage: 50 MG, QD

REACTIONS (6)
  - BLOOD GLUCOSE DECREASED [None]
  - CARDIAC FAILURE CONGESTIVE [None]
  - DYSPHAGIA [None]
  - DYSPNOEA [None]
  - POLLAKIURIA [None]
  - SWELLING FACE [None]
